FAERS Safety Report 5976682-X (Version None)
Quarter: 2008Q4

REPORT INFORMATION
  Report Type: 
  Country: None (occurrence: None)
  Receive Date: 20081125
  Receipt Date: 20081118
  Transmission Date: 20090506
  Serious: Yes (Life-Threatening, Hospitalization)
  Sender: FDA-Public Use
  Company Number: 20573

PATIENT
  Age: 75 Year
  Sex: Male

DRUGS (4)
  1. CYTARABINE [Suspect]
     Indication: ACUTE MYELOID LEUKAEMIA
     Dosage: 37.4 MG QD SC
     Route: 058
     Dates: start: 20081017, end: 20081026
  2. OS CAL [Concomitant]
  3. TRICOR [Concomitant]
  4. MUCINEX [Concomitant]

REACTIONS (3)
  - BACTERAEMIA [None]
  - FEBRILE NEUTROPENIA [None]
  - ORTHOSTATIC HYPOTENSION [None]
